FAERS Safety Report 18907015 (Version 1)
Quarter: 2021Q1

REPORT INFORMATION
  Report Type: Spontaneous
  Country: PL (occurrence: PL)
  Receive Date: 20210217
  Receipt Date: 20210217
  Transmission Date: 20210420
  Serious: Yes (Hospitalization)
  Sender: FDA-Public Use
  Company Number: PL-TEVA-2021-PL-1882338

PATIENT
  Age: 35 Year
  Sex: Female

DRUGS (4)
  1. ETHAMBUTOL [Suspect]
     Active Substance: ETHAMBUTOL HYDROCHLORIDE
     Indication: PERICARDITIS TUBERCULOUS
     Dosage: SCHEDULED FOR 3 MONTHS
     Route: 065
  2. PYRAZINAMIDE. [Suspect]
     Active Substance: PYRAZINAMIDE
     Indication: PERICARDITIS TUBERCULOUS
     Dosage: SCHEDULED FOR 3 MONTHS
     Route: 065
  3. PREDNISOLONE. [Concomitant]
     Active Substance: PREDNISOLONE
     Indication: PERICARDITIS TUBERCULOUS
     Route: 065
  4. RIFAMPICIN [Suspect]
     Active Substance: RIFAMPIN
     Indication: PERICARDITIS TUBERCULOUS
     Dosage: SCHEDULED FOR 6 MONTHS
     Route: 065

REACTIONS (1)
  - Jaundice [Recovered/Resolved]
